FAERS Safety Report 5932696-7 (Version None)
Quarter: 2008Q4

REPORT INFORMATION
  Report Type: 
  Country: None (occurrence: None)
  Receive Date: 20081027
  Receipt Date: 20081027
  Transmission Date: 20090506
  Serious: No
  Sender: FDA-Public Use
  Company Number: None

PATIENT
  Sex: Female
  Weight: 60 kg

DRUGS (6)
  1. MIRENA [Suspect]
     Indication: CONTRACEPTION
     Dosage: 1 MARENA FOR FEW YEARS INTRA-UTERINE
     Route: 015
     Dates: start: 20071218, end: 20081024
  2. INDERAL LONG ACTION [Concomitant]
  3. PAXIL [Concomitant]
  4. GLUCOPHAGE [Concomitant]
  5. MYONAL [Concomitant]
  6. MAXALT [Concomitant]

REACTIONS (11)
  - FATIGUE [None]
  - FLUID RETENTION [None]
  - HYPOTHYROIDISM [None]
  - IRRITABILITY [None]
  - LIBIDO DECREASED [None]
  - MALAISE [None]
  - MOOD SWINGS [None]
  - POLYCYSTIC OVARIES [None]
  - POSTPARTUM HYPOPITUITARISM [None]
  - SOMNOLENCE [None]
  - WEIGHT LOSS POOR [None]
